FAERS Safety Report 9440429 (Version 2)
Quarter: 2013Q3

REPORT INFORMATION
  Report Type: Spontaneous
  Country: US (occurrence: US)
  Receive Date: 20130805
  Receipt Date: 20130917
  Transmission Date: 20140515
  Serious: Yes (Hospitalization, Other)
  Sender: FDA-Public Use
  Company Number: US-VERTEX PHARMACEUTICALS INC-2013-008476

PATIENT
  Sex: 0

DRUGS (3)
  1. INCIVEK [Suspect]
     Indication: HEPATITIS C
  2. PEGINTERFERON [Suspect]
     Indication: HEPATITIS C
  3. RIBAVIRIN [Suspect]
     Indication: HEPATITIS C

REACTIONS (7)
  - Hospitalisation [Unknown]
  - Haemoglobin decreased [Unknown]
  - Gastrointestinal disorder [Unknown]
  - Drug ineffective [Unknown]
  - Anorectal discomfort [Unknown]
  - Rash [Unknown]
  - Pruritus [Unknown]
